FAERS Safety Report 11264646 (Version 3)
Quarter: 2015Q3

REPORT INFORMATION
  Report Type: Spontaneous
  Country: MT (occurrence: MT)
  Receive Date: 20150713
  Receipt Date: 20150903
  Transmission Date: 20151125
  Serious: Yes (Other)
  Sender: FDA-Public Use
  Company Number: MT-BAYER-2015-373164

PATIENT
  Age: 51 Year
  Sex: Female

DRUGS (6)
  1. MIRENA [Suspect]
     Active Substance: LEVONORGESTREL
     Indication: DYSMENORRHOEA
  2. BECLOFORTE [Concomitant]
  3. VENTOLIN [Concomitant]
     Active Substance: ALBUTEROL SULFATE
  4. METFORMIN [Concomitant]
     Active Substance: METFORMIN HYDROCHLORIDE
  5. MIRENA [Suspect]
     Active Substance: LEVONORGESTREL
     Indication: MENORRHAGIA
     Dosage: 20 MCG/24HR, CONT
     Route: 015
  6. ATROVENT [Concomitant]
     Active Substance: IPRATROPIUM BROMIDE

REACTIONS (14)
  - Red blood cell sedimentation rate increased [None]
  - Blood chloride decreased [None]
  - White blood cell count increased [None]
  - Glycosylated haemoglobin increased [None]
  - High density lipoprotein decreased [None]
  - Low density lipoprotein increased [None]
  - Blood potassium increased [None]
  - C-reactive protein increased [None]
  - Gamma-glutamyltransferase increased [None]
  - Blood uric acid increased [None]
  - Blood cholesterol increased [None]
  - Blood glucose increased [None]
  - Total cholesterol/HDL ratio increased [None]
  - Unevaluable event [None]

NARRATIVE: CASE EVENT DATE: 2014
